FAERS Safety Report 14084488 (Version 2)
Quarter: 2017Q4

REPORT INFORMATION
  Report Type: Report from Study
  Country: JP (occurrence: JP)
  Receive Date: 20171013
  Receipt Date: 20171023
  Transmission Date: 20180321
  Serious: Yes (Death)
  Sender: FDA-Public Use
  Company Number: JP-ACTELION-A-CH2016-146216

PATIENT
  Age: 72 Year
  Sex: Female

DRUGS (7)
  1. OPSUMIT [Suspect]
     Active Substance: MACITENTAN
     Indication: PULMONARY ARTERIAL HYPERTENSION
     Dosage: 10 MG, OD
     Route: 048
     Dates: start: 20150721, end: 20170914
  2. TOLVAPTAN [Concomitant]
     Active Substance: TOLVAPTAN
  3. FUROSEMIDE. [Concomitant]
     Active Substance: FUROSEMIDE
  4. TADALAFIL [Concomitant]
     Active Substance: TADALAFIL
  5. BERAPROST [Concomitant]
     Active Substance: BERAPROST
  6. SPIRONOLACTONE. [Concomitant]
     Active Substance: SPIRONOLACTONE
  7. OXYGEN. [Concomitant]
     Active Substance: OXYGEN

REACTIONS (7)
  - Concomitant disease progression [Fatal]
  - Rectourethral fistula [Fatal]
  - Respiratory failure [Fatal]
  - Rectal cancer [Fatal]
  - Iron deficiency anaemia [Fatal]
  - Nausea [Fatal]
  - Haemorrhage [Fatal]

NARRATIVE: CASE EVENT DATE: 20160426
